FAERS Safety Report 9293964 (Version 1)
Quarter: 2013Q1

REPORT INFORMATION
  Report Type: Spontaneous
  Country: US (occurrence: None)
  Receive Date: 20121221
  Receipt Date: 20121221
  Transmission Date: 20140127
  Serious: No
  Sender: FDA-Public Use
  Company Number: PHHY2009US070254

PATIENT
  Sex: Female

DRUGS (1)
  1. FOCALIN XR [Suspect]

REACTIONS (1)
  - Convulsion [None]
